FAERS Safety Report 4444358-6 (Version None)
Quarter: 2004Q3

REPORT INFORMATION
  Report Type: 
  Country: None (occurrence: None)
  Receive Date: 20040730
  Receipt Date: 20031209
  Transmission Date: 20050211
  Serious: No
  Sender: FDA-Public Use
  Company Number: 03P-163-0244417-00

PATIENT
  Age: 25 Year
  Sex: Female

DRUGS (7)
  1. NORVIR [Suspect]
     Indication: HIV INFECTION
     Dosage: 800 MG, 1 IN 1 D, ORAL
     Route: 048
     Dates: start: 20000907, end: 20001028
  2. NORVIR [Suspect]
     Indication: LYMPHOMA
     Dosage: 800 MG, 1 IN 1 D, ORAL
     Route: 048
     Dates: start: 20000907, end: 20001028
  3. ZIDOVUDINE [Concomitant]
  4. LAMIVUDINE [Concomitant]
  5. SAQUINAVIR [Concomitant]
  6. STAVUDINE [Concomitant]
  7. NELFINAVIR [Concomitant]

REACTIONS (2)
  - ASPARTATE AMINOTRANSFERASE INCREASED [None]
  - BLOOD ALKALINE PHOSPHATASE INCREASED [None]
